FAERS Safety Report 16415880 (Version 3)
Quarter: 2019Q2

REPORT INFORMATION
  Report Type: Spontaneous
  Country: US (occurrence: US)
  Receive Date: 20190611
  Receipt Date: 20190628
  Transmission Date: 20190711
  Serious: Yes (Other)
  Sender: FDA-Public Use
  Company Number: US-SA-2019SA157413

PATIENT
  Age: 77 Year
  Sex: Male

DRUGS (2)
  1. MOTRIN [Concomitant]
     Active Substance: IBUPROFEN
     Indication: PAIN
     Dosage: UNK
  2. LIBTAYO [Suspect]
     Active Substance: CEMIPLIMAB-RWLC
     Indication: SQUAMOUS CELL CARCINOMA
     Dosage: UNK UNK, Q3W
     Route: 042

REACTIONS (7)
  - Joint swelling [Unknown]
  - Incorrect route of product administration [Unknown]
  - Myalgia [Not Recovered/Not Resolved]
  - Polymyalgia rheumatica [Unknown]
  - Arthritis [Not Recovered/Not Resolved]
  - Administration site extravasation [Unknown]
  - Bone pain [Not Recovered/Not Resolved]
